FAERS Safety Report 21599195 (Version 2)
Quarter: 2022Q4

REPORT INFORMATION
  Report Type: Spontaneous
  Country: TR (occurrence: TR)
  Receive Date: 20221115
  Receipt Date: 20221121
  Transmission Date: 20230113
  Serious: Yes (Other)
  Sender: FDA-Public Use
  Company Number: TR-009507513-2211TUR004127

PATIENT
  Age: 48 Year
  Sex: Male

DRUGS (7)
  1. ERTAPENEM SODIUM [Suspect]
     Active Substance: ERTAPENEM SODIUM
     Indication: Urinary tract infection
     Dosage: 500 MILLIGRAM, QD
     Route: 042
  2. TACROLIMUS [Concomitant]
     Active Substance: TACROLIMUS
     Dosage: 2 MILLIGRAM, QAM
  3. TACROLIMUS [Concomitant]
     Active Substance: TACROLIMUS
     Dosage: 1 MILLIGRAM, QPM
  4. MYCOPHENOLATE MOFETIL [Concomitant]
     Active Substance: MYCOPHENOLATE MOFETIL
     Dosage: 2X500 MG
  5. PREDNISOLONE [Concomitant]
     Active Substance: PREDNISOLONE
     Dosage: 5 MG/DAY
  6. FUROSEMIDE [Concomitant]
     Active Substance: FUROSEMIDE
     Indication: Hypervolaemia
     Dosage: 40 MILLIGRAM, TID
     Route: 042
  7. FUROSEMIDE [Concomitant]
     Active Substance: FUROSEMIDE
     Indication: Water intoxication

REACTIONS (2)
  - Neurotoxicity [Unknown]
  - Hallucination, visual [Recovered/Resolved]
